FAERS Safety Report 5376484-1 (Version None)
Quarter: 2007Q2

REPORT INFORMATION
  Report Type: 
  Country: None (occurrence: None)
  Receive Date: 20070628
  Receipt Date: 20070628
  Transmission Date: 20071010
  Serious: Yes (Other)
  Sender: FDA-Public Use
  Company Number: None

PATIENT
  Age: 49 Year
  Sex: Female

DRUGS (4)
  1. MACRODANTIN [Suspect]
     Dates: start: 20040116, end: 20050806
  2. LOW-DOSE PREDNISONE [Concomitant]
  3. CELEBREX [Concomitant]
  4. PLAQUENIL [Concomitant]

REACTIONS (20)
  - ARTHRALGIA [None]
  - AUTOIMMUNE HEPATITIS [None]
  - CHILLS [None]
  - DYSPHONIA [None]
  - DYSPNOEA [None]
  - HEPATOMEGALY [None]
  - HYPERHIDROSIS [None]
  - INJECTION SITE RASH [None]
  - MUSCLE SPASMS [None]
  - OEDEMA PERIPHERAL [None]
  - PYREXIA [None]
  - RASH [None]
  - RASH MACULAR [None]
  - RASH PAPULAR [None]
  - REFUSAL OF TREATMENT BY PATIENT [None]
  - SKIN DISORDER [None]
  - SKIN EXFOLIATION [None]
  - SLEEP DISORDER [None]
  - TOOTH DISORDER [None]
  - WEIGHT INCREASED [None]
